FAERS Safety Report 9143335 (Version 1)
Quarter: 2013Q1

REPORT INFORMATION
  Report Type: Spontaneous
  Country: US (occurrence: US)
  Receive Date: 20130306
  Receipt Date: 20130306
  Transmission Date: 20140127
  Serious: No
  Sender: FDA-Public Use
  Company Number: US-ENDO PHARMACEUTICALS INC.-OPER20120382

PATIENT
  Sex: Female
  Weight: 95.34 kg

DRUGS (3)
  1. OPANA ER [Suspect]
     Indication: PAIN
     Route: 048
     Dates: start: 201107, end: 20120305
  2. OPANA ER [Suspect]
     Indication: BACK PAIN
  3. OPANA ER [Suspect]
     Indication: NERVE INJURY

REACTIONS (4)
  - Influenza like illness [Unknown]
  - Fatigue [Unknown]
  - Headache [Unknown]
  - Nausea [Unknown]
